FAERS Safety Report 17573323 (Version 7)
Quarter: 2020Q2

REPORT INFORMATION
  Report Type: Spontaneous
  Country: DE (occurrence: DE)
  Receive Date: 20200323
  Receipt Date: 20200625
  Transmission Date: 20200713
  Serious: Yes (Hospitalization, Other)
  Sender: FDA-Public Use
  Company Number: NVSC2020DE079999

PATIENT
  Age: 53 Year
  Sex: Male
  Weight: 79 kg

DRUGS (27)
  1. CARBOPLATIN. [Suspect]
     Active Substance: CARBOPLATIN
     Dosage: DATE OF LAST DOSE OF CARBOPLATIN TAKEN PRIOR TO EVENT ONSET ON 10/DEC/2019
     Route: 042
  2. ATEZOLIZUMAB. [Suspect]
     Active Substance: ATEZOLIZUMAB
     Indication: SMALL CELL LUNG CANCER
     Dosage: 1200 MG, TIW
     Route: 042
     Dates: start: 20191210
  3. AKYNZEO [Concomitant]
     Active Substance: NETUPITANT\PALONOSETRON HYDROCHLORIDE
     Indication: PRODUCT USED FOR UNKNOWN INDICATION
     Dosage: 300 MG, CYCLIC
     Route: 048
     Dates: start: 20191210, end: 20200110
  4. PANTOPRAZOLE [Concomitant]
     Active Substance: PANTOPRAZOLE
     Indication: PRODUCT USED FOR UNKNOWN INDICATION
     Dosage: 40 MG, QD
     Route: 048
     Dates: start: 20191211, end: 20200102
  5. ETOPOSIDE. [Suspect]
     Active Substance: ETOPOSIDE
     Indication: SMALL CELL LUNG CANCER
     Dosage: 100 MG/M2, TIW (LAST DOSE OF ETOPOSIDE BEFORE EVENT TAKEN ON 12 DEC 2019)
     Route: 042
     Dates: start: 20191210
  6. CARBOPLATIN. [Suspect]
     Active Substance: CARBOPLATIN
     Indication: SMALL CELL LUNG CANCER
     Dosage: 5 MG, TIW
     Route: 042
     Dates: start: 20191210
  7. ATEZOLIZUMAB. [Suspect]
     Active Substance: ATEZOLIZUMAB
     Dosage: DATE OF LAST DOSE OF ATEZOLIZUMAB TAKEN PRIOR TO EVENT ONSET ON 10/DEC/2019
     Route: 041
  8. ATEZOLIZUMAB. [Suspect]
     Active Substance: ATEZOLIZUMAB
     Dosage: DATE OF LAST DOSE OF ATEZOLIZUMAB TAKEN PRIOR TO EVENT ONSET ON 10/DEC/2019
     Route: 041
  9. ATEZOLIZUMAB. [Suspect]
     Active Substance: ATEZOLIZUMAB
     Dosage: DATE OF LAST DOSE OF ATEZOLIZUMAB TAKEN PRIOR TO EVENT ONSET ON 10/DEC/2019
     Route: 042
  10. ALLOPURINOL. [Concomitant]
     Active Substance: ALLOPURINOL
     Indication: PRODUCT USED FOR UNKNOWN INDICATION
     Dosage: 300 MG, QD
     Route: 048
     Dates: start: 20191211
  11. ETOPOSIDE. [Suspect]
     Active Substance: ETOPOSIDE
     Dosage: 100 MG/M2, TIW DATE OF LAST DOSE OF ETOPOSIDE TAKEN PRIOR TO EVENT ONSET ON 12/DEC/2019
     Route: 042
  12. FRAGMIN [Concomitant]
     Active Substance: DALTEPARIN SODIUM
     Indication: PRODUCT USED FOR UNKNOWN INDICATION
     Dosage: 5000 IU, QD
     Route: 058
     Dates: start: 20191210, end: 20191212
  13. PANTOPRAZOLE [Concomitant]
     Active Substance: PANTOPRAZOLE
     Dosage: 40 MG, QD
     Route: 048
     Dates: start: 20200110
  14. ZOPICLONE [Concomitant]
     Active Substance: ZOPICLONE
     Indication: PRODUCT USED FOR UNKNOWN INDICATION
     Dosage: 7 MG, QD
     Route: 048
     Dates: start: 20191209, end: 20191212
  15. TILIDIN [Concomitant]
     Active Substance: NALOXONE HYDROCHLORIDE\TILIDINE HYDROCHLORIDE
     Indication: PRODUCT USED FOR UNKNOWN INDICATION
     Dosage: 720 UL, PRN
     Route: 048
     Dates: start: 20111231, end: 20200101
  16. ETOPOSIDE. [Suspect]
     Active Substance: ETOPOSIDE
     Dosage: 100 MG/M2, TIW DATE OF LAST DOSE OF ETOPOSIDE TAKEN PRIOR TO EVENT ONSET ON 12/DEC/2019
     Route: 042
  17. ETOPOSIDE. [Suspect]
     Active Substance: ETOPOSIDE
     Dosage: 100 MG/M2, TIW DATE OF LAST DOSE OF ETOPOSIDE TAKEN PRIOR TO EVENT ONSET ON 12/DEC/2019
     Route: 042
  18. CARBOPLATIN. [Suspect]
     Active Substance: CARBOPLATIN
     Dosage: DATE OF LAST DOSE OF CARBOPLATIN TAKEN PRIOR TO EVENT ONSET ON 10/DEC/2019
     Route: 042
  19. ZOPICLONE [Concomitant]
     Active Substance: ZOPICLONE
     Dosage: 3750 UG, PRN
     Route: 048
     Dates: start: 20191228, end: 20200101
  20. FUROSEMIDE. [Concomitant]
     Active Substance: FUROSEMIDE
     Indication: PRODUCT USED FOR UNKNOWN INDICATION
     Dosage: 40 MG, QD
     Route: 042
     Dates: start: 20191212, end: 20191212
  21. DEXAMETHASONE. [Concomitant]
     Active Substance: DEXAMETHASONE
     Indication: PRODUCT USED FOR UNKNOWN INDICATION
     Dosage: 12 MG, CYCLIC
     Route: 048
     Dates: start: 20191210
  22. ETOPOSIDE. [Suspect]
     Active Substance: ETOPOSIDE
     Dosage: 100 MG/M2, TIW DATE OF LAST DOSE OF ETOPOSIDE TAKEN PRIOR TO EVENT ONSET ON 12/DEC/2019
     Route: 042
  23. ZOPICLONE [Concomitant]
     Active Substance: ZOPICLONE
     Dosage: 7500 MG, PRN
     Route: 048
     Dates: start: 20200109
  24. FRAGMIN [Concomitant]
     Active Substance: DALTEPARIN SODIUM
     Dosage: 5000 IU, QD
     Route: 058
     Dates: start: 20200109, end: 20200110
  25. CARBOPLATIN. [Suspect]
     Active Substance: CARBOPLATIN
     Dosage: DATE OF LAST DOSE OF CARBOPLATIN TAKEN PRIOR TO EVENT ONSET ON 10/DEC/2019
     Route: 042
  26. CARBOPLATIN. [Suspect]
     Active Substance: CARBOPLATIN
     Dosage: DATE OF LAST DOSE OF CARBOPLATIN TAKEN PRIOR TO EVENT ONSET ON 10/DEC/2019
     Route: 042
  27. ATEZOLIZUMAB. [Suspect]
     Active Substance: ATEZOLIZUMAB
     Dosage: DATE OF LAST DOSE OF ATEZOLIZUMAB TAKEN PRIOR TO EVENT ONSET ON 10/DEC/2019
     Route: 041

REACTIONS (20)
  - Peripheral sensory neuropathy [Recovered/Resolved]
  - Nausea [Recovered/Resolved]
  - Back pain [Recovered/Resolved]
  - Cough [Not Recovered/Not Resolved]
  - Neutropenia [Recovered/Resolved]
  - Vomiting [Recovered/Resolved]
  - Dyspnoea [Recovered/Resolved]
  - Hyponatraemia [Recovered/Resolved]
  - Thrombocytopenia [Recovered/Resolved]
  - Fatigue [Recovered/Resolved]
  - Dehydration [Recovered/Resolved]
  - Hyperkalaemia [Recovered/Resolved]
  - Eczema [Recovered/Resolved]
  - Decreased appetite [Recovered/Resolved]
  - Abdominal pain upper [Recovered/Resolved]
  - General physical health deterioration [Recovered/Resolved]
  - Decreased appetite [Recovered/Resolved]
  - Erythema [Recovered/Resolved]
  - Leukopenia [Recovered/Resolved]
  - Diarrhoea [Recovered/Resolved]

NARRATIVE: CASE EVENT DATE: 201912
